FAERS Safety Report 5030450-4 (Version None)
Quarter: 2006Q2

REPORT INFORMATION
  Report Type: 
  Country: None (occurrence: None)
  Receive Date: 20060614
  Receipt Date: 20060601
  Transmission Date: 20061013
  Serious: Yes (Hospitalization)
  Sender: FDA-Public Use
  Company Number: HQWYE641001JUN06

PATIENT
  Age: 83 Year
  Sex: Male

DRUGS (9)
  1. CORDARONE [Suspect]
     Indication: ATRIAL FIBRILLATION
     Dosage: 200 MG 1X PER 1 DAY ORAL
     Route: 048
     Dates: start: 20050129, end: 20060129
  2. SINTROM [Suspect]
     Indication: ATRIAL FIBRILLATION
     Dosage: ORAL
     Route: 048
     Dates: start: 20040129, end: 20060129
  3. LASIX [Concomitant]
  4. CARVEDILOL [Concomitant]
  5. ALLOPURINOL [Concomitant]
  6. RAMIPRIL [Concomitant]
  7. LASITONE (FUROSEMIDE/SPIRONOLACTONE) [Concomitant]
  8. GLYBURIDE AND METFORMIN HCL [Concomitant]
  9. AMIODARONE HCL [Concomitant]

REACTIONS (6)
  - FACE INJURY [None]
  - HAEMOGLOBIN DECREASED [None]
  - INTERNATIONAL NORMALISED RATIO INCREASED [None]
  - PROTHROMBIN TIME PROLONGED [None]
  - THYROXINE FREE DECREASED [None]
  - TRAUMATIC HAEMATOMA [None]
